FAERS Safety Report 7403714-4 (Version None)
Quarter: 2011Q2

REPORT INFORMATION
  Report Type: 
  Country: None (occurrence: None)
  Receive Date: 20110408
  Receipt Date: 20110318
  Transmission Date: 20111010
  Serious: No
  Sender: FDA-Public Use
  Company Number: US-B.I. PHARMACEUTICALS,INC./RIDGEFIELD-2011-BP-05860BP

PATIENT
  Age: 64 Year
  Sex: Male

DRUGS (2)
  1. COLCHICINE [Concomitant]
     Indication: GOUT
     Dosage: 5 MG
  2. SPIRIVA [Suspect]
     Indication: CHRONIC OBSTRUCTIVE PULMONARY DISEASE
     Dosage: 18 MCG
     Route: 055
     Dates: start: 20070101

REACTIONS (1)
  - DRUG INEFFECTIVE [None]
